FAERS Safety Report 5552971-8 (Version None)
Quarter: 2007Q4

REPORT INFORMATION
  Report Type: 
  Country: None (occurrence: None)
  Receive Date: 20071207
  Receipt Date: 20071128
  Transmission Date: 20080405
  Serious: Yes (Other)
  Sender: FDA-Public Use
  Company Number: 2007334541

PATIENT
  Age: 15 Month
  Sex: Male

DRUGS (1)
  1. NEOSPORIN [Suspect]
     Indication: THERMAL BURN
     Dosage: ENOUGH TO COVER BURN ONCE PER DAY, TOPICAL
     Route: 061
     Dates: start: 20071001, end: 20071027

REACTIONS (2)
  - BURNS THIRD DEGREE [None]
  - INSOMNIA [None]
